FAERS Safety Report 5287082-2 (Version None)
Quarter: 2007Q2

REPORT INFORMATION
  Report Type: 
  Country: None (occurrence: None)
  Receive Date: 20070404
  Receipt Date: 20070402
  Transmission Date: 20071010
  Serious: Yes (Hospitalization, Other)
  Sender: FDA-Public Use
  Company Number: US-PFIZER INC-2006130837

PATIENT
  Sex: Female

DRUGS (2)
  1. CELEBREX [Suspect]
     Dates: start: 20010501, end: 20010501
  2. VIOXX [Suspect]
     Dosage: TEXT:UNKNOWN
     Dates: start: 20010626, end: 20031229

REACTIONS (1)
  - ISCHAEMIC STROKE [None]
